FAERS Safety Report 14674294 (Version 1)
Quarter: 2018Q1

REPORT INFORMATION
  Report Type: Report from Study
  Country: None (occurrence: US)
  Receive Date: 20180323
  Receipt Date: 20180323
  Transmission Date: 20180509
  Serious: Yes (Hospitalization)
  Sender: FDA-Public Use
  Company Number: US-ABBVIE-18K-163-2294360-00

PATIENT
  Age: 68 Year
  Sex: Male

DRUGS (4)
  1. AZATHIOPRINE. [Suspect]
     Active Substance: AZATHIOPRINE
     Indication: PRODUCT USED FOR UNKNOWN INDICATION
     Dosage: UNKNOWN - ^1 PILL^
     Route: 048
     Dates: start: 2018, end: 20180309
  2. HUMIRA [Suspect]
     Active Substance: ADALIMUMAB
     Indication: CROHN^S DISEASE
     Route: 058
     Dates: start: 201701, end: 201712
  3. AZATHIOPRINE. [Suspect]
     Active Substance: AZATHIOPRINE
     Dosage: INITIAL DOSE INCREASED
     Route: 048
     Dates: start: 20180310, end: 20180311
  4. AZATHIOPRINE. [Suspect]
     Active Substance: AZATHIOPRINE
     Dosage: CONTINUATION OF SAME PREVIOUSLY NOTED INCREASED DOSE
     Route: 048
     Dates: start: 20180318, end: 20180318

REACTIONS (9)
  - Cardiac amyloidosis [Recovering/Resolving]
  - Pain [Recovered/Resolved]
  - Vomiting [Recovered/Resolved]
  - Device related infection [Not Recovered/Not Resolved]
  - Arthralgia [Recovering/Resolving]
  - Chills [Recovered/Resolved]
  - Feeling cold [Recovered/Resolved]
  - Asthenia [Recovered/Resolved]
  - Sepsis [Recovering/Resolving]

NARRATIVE: CASE EVENT DATE: 20180311
